FAERS Safety Report 19691939 (Version 1)
Quarter: 2021Q3

REPORT INFORMATION
  Report Type: Spontaneous
  Country: US (occurrence: US)
  Receive Date: 20210812
  Receipt Date: 20210812
  Transmission Date: 20211014
  Serious: No
  Sender: FDA-Public Use
  Company Number: US-PERRIGO-20US013710

PATIENT
  Age: 30 Year
  Sex: Male
  Weight: 106.58 kg

DRUGS (1)
  1. IBUPROFEN. [Suspect]
     Active Substance: IBUPROFEN
     Indication: HEADACHE
     Dosage: 200 TO 400 MG, EVERY 4 TO 5 HOURS (TOTAL OF 5 TABLETS)
     Route: 048
     Dates: start: 20200917, end: 20200918

REACTIONS (2)
  - Expired product administered [Recovered/Resolved]
  - Abdominal pain upper [Not Recovered/Not Resolved]

NARRATIVE: CASE EVENT DATE: 20200917
